FAERS Safety Report 5757736-X (Version None)
Quarter: 2008Q2

REPORT INFORMATION
  Report Type: 
  Country: None (occurrence: None)
  Receive Date: 20080529
  Receipt Date: 20080513
  Transmission Date: 20081010
  Serious: Yes (Other)
  Sender: FDA-Public Use
  Company Number: 8021853

PATIENT
  Age: 54 Year
  Sex: Female

DRUGS (2)
  1. KEPPRA [Suspect]
     Dosage: 1000 MG 2/D
     Dates: start: 20010701
  2. KEPPRA [Suspect]
     Dosage: 1750 MG

REACTIONS (5)
  - AGGRESSION [None]
  - CONVERSION DISORDER [None]
  - HOSTILITY [None]
  - IMPAIRED WORK ABILITY [None]
  - SCREAMING [None]
